FAERS Safety Report 14320140 (Version 5)
Quarter: 2018Q1

REPORT INFORMATION
  Report Type: Spontaneous
  Country: GB (occurrence: GB)
  Receive Date: 20171222
  Receipt Date: 20180130
  Transmission Date: 20180509
  Serious: Yes (Death, Other)
  Sender: FDA-Public Use
  Company Number: GB-TEVA-2017-GB-836373

PATIENT
  Age: 32 Year
  Sex: Male

DRUGS (2)
  1. MORPHINE SULFATE. [Interacting]
     Active Substance: MORPHINE SULFATE
     Indication: PRODUCT USED FOR UNKNOWN INDICATION
     Route: 065
  2. DIAZEPAM. [Suspect]
     Active Substance: DIAZEPAM
     Indication: PRODUCT USED FOR UNKNOWN INDICATION
     Route: 065

REACTIONS (8)
  - Asphyxia [Fatal]
  - Potentiating drug interaction [Fatal]
  - Heart rate decreased [Fatal]
  - Drug interaction [Unknown]
  - Cardio-respiratory distress [Fatal]
  - Respiratory rate decreased [Fatal]
  - Drug use disorder [Unknown]
  - Coma [Fatal]
